FAERS Safety Report 22542164 (Version 19)
Quarter: 2025Q3

REPORT INFORMATION
  Report Type: Spontaneous
  Country: US (occurrence: US)
  Receive Date: 20230609
  Receipt Date: 20250708
  Transmission Date: 20251020
  Serious: No
  Sender: VERTEX
  Company Number: US-VERTEX PHARMACEUTICALS-2023-006782

PATIENT
  Weight: 70 kg

DRUGS (2)
  1. TRIKAFTA [Suspect]
     Active Substance: ELEXACAFTOR\IVACAFTOR\TEZACAFTOR
     Indication: Cystic fibrosis
     Route: 048
     Dates: start: 2022
  2. URSODIOL [Concomitant]
     Active Substance: URSODIOL

REACTIONS (18)
  - Blood glucose abnormal [Recovering/Resolving]
  - Somnolence [Unknown]
  - Tinnitus [Unknown]
  - Skin striae [Unknown]
  - Muscle spasms [Unknown]
  - Lethargy [Unknown]
  - Fatigue [Recovered/Resolved]
  - Pain [Recovered/Resolved]
  - Dehydration [Not Recovered/Not Resolved]
  - Intestinal obstruction [Unknown]
  - Gastrointestinal pain [Unknown]
  - Anxiety [Recovered/Resolved]
  - Hepatic pain [Unknown]
  - Liver disorder [Not Recovered/Not Resolved]
  - Panic attack [Not Recovered/Not Resolved]
  - Brain fog [Recovered/Resolved]
  - Pruritus [Not Recovered/Not Resolved]
  - Hypoglycaemia [Recovering/Resolving]
